FAERS Safety Report 4363883-X (Version None)
Quarter: 2004Q2

REPORT INFORMATION
  Report Type: 
  Country: None (occurrence: None)
  Receive Date: 20040520
  Receipt Date: 20040520
  Transmission Date: 20050107
  Serious: Yes (Other)
  Sender: FDA-Public Use
  Company Number: None

PATIENT
  Age: 49 Year
  Sex: Male
  Weight: 59.8748 kg

DRUGS (2)
  1. PERCOCET [Suspect]
     Indication: ARTHRALGIA
     Dosage: ORAL QID
  2. PERCOCET [Suspect]
     Indication: MYALGIA
     Dosage: ORAL QID

REACTIONS (2)
  - PHARMACEUTICAL PRODUCT COMPLAINT [None]
  - STOMACH DISCOMFORT [None]
